FAERS Safety Report 9391088 (Version 1)
Quarter: 2013Q3

REPORT INFORMATION
  Report Type: Spontaneous
  Country: US (occurrence: US)
  Receive Date: 20130709
  Receipt Date: 20130709
  Transmission Date: 20140515
  Serious: Yes (Other)
  Sender: FDA-Public Use
  Company Number: US-PFIZER INC-2013200015

PATIENT
  Sex: Male
  Weight: 67.12 kg

DRUGS (4)
  1. GABAPENTIN [Suspect]
     Indication: NERVE INJURY
     Dosage: 600 MG, 3X/DAY
     Dates: start: 2004
  2. CHANTIX [Suspect]
     Indication: SMOKING CESSATION THERAPY
     Dosage: UNK
  3. METFORMIN [Concomitant]
     Indication: DIABETES MELLITUS
     Dosage: 1000 MG (2 TABLETS OF 500 MG), 1X/DAY
  4. VICODIN [Concomitant]
     Indication: PAIN
     Dosage: ^5.5 MG^, AS NEEDED

REACTIONS (3)
  - Tendon disorder [Unknown]
  - Fear [Unknown]
  - Pain [Unknown]
